FAERS Safety Report 6676041-0 (Version None)
Quarter: 2010Q2

REPORT INFORMATION
  Report Type: 
  Country: None (occurrence: None)
  Receive Date: 20100412
  Receipt Date: 20100329
  Transmission Date: 20101027
  Serious: Yes (Hospitalization)
  Sender: FDA-Public Use
  Company Number: JP-RANBAXY-2010RR-32957

PATIENT
  Age: 74 Year
  Sex: Female

DRUGS (10)
  1. DEXMEDETOMIDINE HYDROCHLORIDE [Suspect]
     Dosage: 0.26 UG/KG, Q1H
  2. DEXMEDETOMIDINE HYDROCHLORIDE [Suspect]
     Dosage: 0.52 UG/KG, Q1H
  3. MIDAZOLAM HCL [Suspect]
     Indication: ANAESTHESIA
     Dosage: 6 MG, UNK
  4. FENTANYL [Suspect]
     Indication: ANAESTHESIA
     Dosage: 200 UG, UNK
  5. VECURONIUM BROMIDE [Suspect]
     Indication: HYPOTONIA
     Dosage: 6 MG, UNK
  6. SEVOFLURANE [Suspect]
     Indication: ANAESTHESIA
     Dosage: UNK %, UNK
  7. REMIFENTANIL [Suspect]
     Indication: ANAESTHESIA
  8. PROPOFOL [Concomitant]
     Dosage: 4 MG/KG, Q1H
  9. PROPOFOL [Concomitant]
     Dosage: 80 MG, Q1H
  10. FENTANYL [Concomitant]
     Dosage: 50 UG, Q1H

REACTIONS (3)
  - APNOEA [None]
  - DRUG INTERACTION [None]
  - RESPIRATORY DEPRESSION [None]
